FAERS Safety Report 5853900-X (Version None)
Quarter: 2008Q3

REPORT INFORMATION
  Report Type: 
  Country: None (occurrence: None)
  Receive Date: 20080822
  Receipt Date: 20080818
  Transmission Date: 20090109
  Serious: Yes (Hospitalization)
  Sender: FDA-Public Use
  Company Number: A0743092A

PATIENT
  Age: 58 Year
  Sex: Female

DRUGS (4)
  1. AVANDIA [Suspect]
     Route: 048
     Dates: start: 20050101
  2. METFORMIN [Suspect]
     Route: 048
     Dates: start: 20050101
  3. AMARYL [Concomitant]
  4. CRESTOR [Concomitant]

REACTIONS (4)
  - AORTIC SURGERY [None]
  - DRUG INEFFECTIVE [None]
  - FEELING ABNORMAL [None]
  - THROMBOSIS [None]
